FAERS Safety Report 8044332-7 (Version None)
Quarter: 2012Q1

REPORT INFORMATION
  Report Type: 
  Country: None (occurrence: None)
  Receive Date: 20120113
  Receipt Date: 20120106
  Transmission Date: 20120608
  Serious: Yes (Hospitalization)
  Sender: FDA-Public Use
  Company Number: US-BAYER-2011-081958

PATIENT
  Age: 34 Year
  Sex: Female

DRUGS (15)
  1. YAZ [Suspect]
     Indication: PREMENSTRUAL SYNDROME
     Dosage: UNK
     Dates: start: 20080324, end: 20100214
  2. YASMIN [Suspect]
  3. ACETAMINOPHEN [Concomitant]
     Indication: HEADACHE
     Dosage: 2 TABLETS
     Route: 048
  4. MOTRIN [Concomitant]
  5. YAZ [Suspect]
     Indication: CONTRACEPTION
     Dosage: UNK
     Dates: start: 20070317, end: 20070401
  6. PRISTIQ [Concomitant]
     Dosage: 50 MG, QD
  7. DROSPIRENONE AND ETHINYL ESTRADIOL [Suspect]
     Dosage: UNK
     Dates: start: 20070317, end: 20070401
  8. FLEXERIL [Concomitant]
  9. NADOLOL [Concomitant]
     Dosage: 40 MG, QD
  10. YASMIN [Suspect]
     Indication: PREMENSTRUAL SYNDROME
     Dosage: UNK
     Dates: start: 20080324, end: 20100214
  11. YASMIN [Suspect]
     Indication: ENDOMETRIOSIS
  12. KLONOPIN [Concomitant]
     Dosage: 0.5 MG, PRN
  13. DROSPIRENONE AND ETHINYL ESTRADIOL [Suspect]
     Dosage: UNK
     Dates: start: 20080324, end: 20100214
  14. YAZ [Suspect]
  15. YASMIN [Suspect]
     Indication: CONTRACEPTION
     Dosage: UNK
     Dates: start: 20070317, end: 20070401

REACTIONS (7)
  - AMNESIA [None]
  - PAIN [None]
  - UTERINE INFECTION [None]
  - POST PROCEDURAL HAEMORRHAGE [None]
  - TRANSIENT ISCHAEMIC ATTACK [None]
  - CEREBROVASCULAR ACCIDENT [None]
  - INJURY [None]
